FAERS Safety Report 7338083-1 (Version None)
Quarter: 2011Q1

REPORT INFORMATION
  Report Type: 
  Country: None (occurrence: None)
  Receive Date: 20110308
  Receipt Date: 20110223
  Transmission Date: 20110831
  Serious: Yes (Other)
  Sender: FDA-Public Use
  Company Number: PHHY2011DE15916

PATIENT
  Age: 8 Year
  Sex: Male

DRUGS (4)
  1. RITALIN LA [Suspect]
     Dosage: 10 MG, QD
     Route: 048
     Dates: start: 20110223
  2. RISPERDAL [Concomitant]
  3. RITALIN LA [Suspect]
     Indication: ATTENTION DEFICIT/HYPERACTIVITY DISORDER
     Dosage: 30 MG, QD
     Route: 048
     Dates: start: 20091001, end: 20100501
  4. RITALIN LA [Suspect]
     Dosage: 20 MG, QD
     Route: 048
     Dates: start: 20100501, end: 20110223

REACTIONS (7)
  - TIC [None]
  - TACHYCARDIA [None]
  - LIVER FUNCTION TEST ABNORMAL [None]
  - HYPERHIDROSIS [None]
  - COUGH [None]
  - NIGHT SWEATS [None]
  - FATIGUE [None]
